FAERS Safety Report 12736350 (Version 2)
Quarter: 2016Q4

REPORT INFORMATION
  Report Type: Spontaneous
  Country: US (occurrence: US)
  Receive Date: 20160913
  Receipt Date: 20161115
  Transmission Date: 20170207
  Serious: No
  Sender: FDA-Public Use
  Company Number: US-LEO PHARMA-243831

PATIENT
  Age: 59 Year
  Sex: Female

DRUGS (1)
  1. PICATO [Suspect]
     Active Substance: INGENOL MEBUTATE
     Indication: ACTINIC KERATOSIS
     Route: 061
     Dates: start: 20160725, end: 20160727

REACTIONS (6)
  - Drug ineffective [Unknown]
  - Actinic keratosis [Not Recovered/Not Resolved]
  - Drug administered at inappropriate site [Unknown]
  - Product physical consistency issue [Unknown]
  - Application site rash [Not Recovered/Not Resolved]
  - Incorrect product storage [Unknown]
